FAERS Safety Report 11602586 (Version 1)
Quarter: 2015Q4

REPORT INFORMATION
  Report Type: Spontaneous
  Country: US (occurrence: US)
  Receive Date: 20151006
  Receipt Date: 20151006
  Transmission Date: 20160304
  Serious: No
  Sender: FDA-Public Use
  Company Number: US-AMGEN-USASP2015039829

PATIENT
  Age: 72 Year
  Sex: Female

DRUGS (7)
  1. PROLIA [Suspect]
     Active Substance: DENOSUMAB
     Indication: PRODUCT USED FOR UNKNOWN INDICATION
     Dosage: UNK
     Route: 065
     Dates: start: 201503
  2. CALCIUM [Concomitant]
     Active Substance: CALCIUM
  3. PRAMIPEXOLE. [Concomitant]
     Active Substance: PRAMIPEXOLE
  4. MONTELUKAST [Concomitant]
     Active Substance: MONTELUKAST SODIUM
  5. UCERIS [Concomitant]
     Active Substance: BUDESONIDE
  6. MAGNESIUM [Concomitant]
     Active Substance: MAGNESIUM
  7. LIALDA [Concomitant]
     Active Substance: MESALAMINE

REACTIONS (3)
  - Myalgia [Unknown]
  - Pain in extremity [Unknown]
  - Asthma [Unknown]
